FAERS Safety Report 10214259 (Version 2)
Quarter: 2016Q1

REPORT INFORMATION
  Report Type: Spontaneous
  Country: CA (occurrence: CA)
  Receive Date: 20140603
  Receipt Date: 20160328
  Transmission Date: 20160525
  Serious: Yes (Other)
  Sender: FDA-Public Use
  Company Number: CA-JNJFOC-20140514575

PATIENT
  Age: 63 Year
  Sex: Female

DRUGS (5)
  1. ROBAX [Suspect]
     Active Substance: IBUPROFEN\METHOCARBAMOL
     Indication: PRODUCT USED FOR UNKNOWN INDICATION
     Route: 065
  2. REACTINE ES 10MG TABLET [Suspect]
     Active Substance: CETIRIZINE HYDROCHLORIDE
     Indication: SEASONAL ALLERGY
     Route: 048
  3. REACTINE ES 10MG TABLET [Suspect]
     Active Substance: CETIRIZINE HYDROCHLORIDE
     Indication: MULTIPLE ALLERGIES
     Route: 048
  4. REACTINE ES 10MG TABLET [Suspect]
     Active Substance: CETIRIZINE HYDROCHLORIDE
     Indication: MULTIPLE ALLERGIES
     Dosage: 1 - 2
     Route: 048
  5. REACTINE ES 10MG TABLET [Suspect]
     Active Substance: CETIRIZINE HYDROCHLORIDE
     Indication: SEASONAL ALLERGY
     Dosage: 1 - 2
     Route: 048

REACTIONS (4)
  - Poor quality sleep [Unknown]
  - Drug ineffective [Unknown]
  - Cataract [Unknown]
  - Overdose [Unknown]
